FAERS Safety Report 5397572-X (Version None)
Quarter: 2007Q3

REPORT INFORMATION
  Report Type: 
  Country: None (occurrence: None)
  Receive Date: 20070726
  Receipt Date: 20070714
  Transmission Date: 20080115
  Serious: Yes (Other)
  Sender: FDA-Public Use
  Company Number: GB-ROCHE-507982

PATIENT
  Age: 55 Year
  Sex: Female
  Weight: 82.9 kg

DRUGS (2)
  1. XENICAL [Suspect]
     Indication: OBESITY
     Route: 048
     Dates: start: 20070619
  2. UNSPECIFIED DRUGS [Concomitant]

REACTIONS (1)
  - HEART RATE DECREASED [None]
